FAERS Safety Report 18300559 (Version 1)
Quarter: 2020Q3

REPORT INFORMATION
  Report Type: Spontaneous
  Country: US (occurrence: US)
  Receive Date: 20200923
  Receipt Date: 20200923
  Transmission Date: 20201103
  Serious: Yes (Life-Threatening, Hospitalization, Disabling, Other)
  Sender: FDA-Public Use
  Company Number: None

PATIENT
  Age: 23 Year
  Sex: Male
  Weight: 97.65 kg

DRUGS (5)
  1. LEVETIRACETAM 500MG [Suspect]
     Active Substance: LEVETIRACETAM
     Indication: PETIT MAL EPILEPSY
     Dosage: ?          QUANTITY:1 TABLET(S);?
     Route: 048
     Dates: start: 20170317, end: 20181231
  2. LAMOTRIGINE. [Concomitant]
     Active Substance: LAMOTRIGINE
  3. DEPAKOTE [Concomitant]
     Active Substance: DIVALPROEX SODIUM
  4. ZYPREXA [Concomitant]
     Active Substance: OLANZAPINE
  5. TOPIRAMATE. [Concomitant]
     Active Substance: TOPIRAMATE

REACTIONS (8)
  - Drug hypersensitivity [None]
  - Hallucination [None]
  - Suicidal ideation [None]
  - Generalised tonic-clonic seizure [None]
  - Mood altered [None]
  - Aggression [None]
  - Epilepsy [None]
  - Agitation [None]

NARRATIVE: CASE EVENT DATE: 20190301
